FAERS Safety Report 7343388-4 (Version None)
Quarter: 2011Q1

REPORT INFORMATION
  Report Type: 
  Country: None (occurrence: None)
  Receive Date: 20110225
  Receipt Date: 20110223
  Transmission Date: 20110831
  Serious: Yes (Death)
  Sender: FDA-Public Use
  Company Number: 2011SP008365

PATIENT
  Age: 60 Year
  Sex: Male

DRUGS (13)
  1. NOXAFIL [Suspect]
     Indication: ASPERGILLOSIS
     Dosage: 20 ML;QD;
     Dates: start: 20100708, end: 20100809
  2. ZOPIKLON [Concomitant]
  3. EMGESAN [Concomitant]
  4. SPIRIVA [Concomitant]
  5. INDERAL [Concomitant]
  6. PREDNISOLONE [Concomitant]
  7. PROGRAF [Concomitant]
  8. SYMBICORT [Concomitant]
  9. E-VIMIN [Concomitant]
  10. AZATIOPRIN [Concomitant]
  11. KETOGAN [Concomitant]
  12. ALENAT [Concomitant]
  13. IDEOS [Concomitant]

REACTIONS (2)
  - DIARRHOEA [None]
  - PULMONARY EMBOLISM [None]
